FAERS Safety Report 9627139 (Version 1)
Quarter: 2013Q4

REPORT INFORMATION
  Report Type: Spontaneous
  Country: US (occurrence: US)
  Receive Date: 20131016
  Receipt Date: 20131016
  Transmission Date: 20140711
  Serious: Yes (Other)
  Sender: FDA-Public Use
  Company Number: PHEH2013US021476

PATIENT
  Sex: Female

DRUGS (7)
  1. EXFORGE [Suspect]
     Dosage: 1 DF (VALS 320MG, AMLO 10MG) QD
  2. PLAVIX [Concomitant]
  3. HYDRALAZINE [Concomitant]
  4. BYSTOLIC [Concomitant]
  5. HYDROCHLOROTHIAZIDE [Concomitant]
  6. PRAVASTATIN SODIUM [Concomitant]
  7. ATORVASTATIN [Concomitant]

REACTIONS (1)
  - Blindness [Unknown]
